FAERS Safety Report 14182547 (Version 2)
Quarter: 2017Q4

REPORT INFORMATION
  Report Type: Spontaneous
  Country: US (occurrence: US)
  Receive Date: 20171113
  Receipt Date: 20171201
  Transmission Date: 20180321
  Serious: No
  Sender: FDA-Public Use
  Company Number: US-PFIZER INC-2017484874

PATIENT
  Age: 46 Year
  Sex: Female
  Weight: 81.65 kg

DRUGS (1)
  1. FLECTOR [Suspect]
     Active Substance: DICLOFENAC EPOLAMINE
     Indication: INFLAMMATION
     Dosage: 1.3 %, 2X/DAY
     Dates: start: 20100621, end: 201008

REACTIONS (1)
  - Palpitations [Unknown]
